FAERS Safety Report 22209971 (Version 1)
Quarter: 2023Q2

REPORT INFORMATION
  Report Type: Spontaneous
  Country: US (occurrence: US)
  Receive Date: 20230414
  Receipt Date: 20230414
  Transmission Date: 20230721
  Serious: Yes (Other)
  Sender: FDA-Public Use
  Company Number: US-AstraZeneca-2018SE72920

PATIENT
  Sex: Female

DRUGS (3)
  1. RHINOCORT ALLERGY [Suspect]
     Active Substance: BUDESONIDE
     Indication: Product used for unknown indication
     Dosage: 2 SPRAY EACH NOSTRIL ONCE A DAY
     Route: 045
     Dates: start: 20171110
  2. SYMBICORT [Suspect]
     Active Substance: BUDESONIDE\FORMOTEROL FUMARATE DIHYDRATE
     Indication: Asthma
     Dosage: 160/4.5MG 2 PUFFS TWICE A DAY
     Route: 055
     Dates: start: 20180215
  3. NEXIUM [Suspect]
     Active Substance: ESOMEPRAZOLE MAGNESIUM
     Indication: Gastrooesophageal reflux disease
     Dosage: TWO TIMES A DAY
     Route: 048

REACTIONS (30)
  - Type V hyperlipidaemia [Unknown]
  - Cough [Unknown]
  - Asthma [Unknown]
  - Gastrooesophageal reflux disease [Unknown]
  - Dyspnoea [Unknown]
  - Wheezing [Unknown]
  - Rhinorrhoea [Unknown]
  - Sneezing [Unknown]
  - Chest discomfort [Unknown]
  - Chest pain [Unknown]
  - Conjunctivitis allergic [Unknown]
  - Oedema peripheral [Unknown]
  - Asthma-chronic obstructive pulmonary disease overlap syndrome [Unknown]
  - Chronic kidney disease [Unknown]
  - Hypertension [Unknown]
  - Rhinitis [Unknown]
  - Essential tremor [Unknown]
  - Osteoarthritis [Unknown]
  - Foot deformity [Unknown]
  - Hypothyroidism [Unknown]
  - Lactase deficiency [Unknown]
  - Type 2 diabetes mellitus [Unknown]
  - Major depression [Unknown]
  - Hypoxia [Unknown]
  - Osteopenia [Unknown]
  - Periodic limb movement disorder [Unknown]
  - Phlebitis [Unknown]
  - Thrombophlebitis [Unknown]
  - Vitamin D deficiency [Unknown]
  - Intentional product use issue [Unknown]
